FAERS Safety Report 8974515 (Version 3)
Quarter: 2013Q1

REPORT INFORMATION
  Report Type: Spontaneous
  Country: US (occurrence: US)
  Receive Date: 20121219
  Receipt Date: 20130307
  Transmission Date: 20140127
  Serious: Yes (Hospitalization, Other)
  Sender: FDA-Public Use
  Company Number: US-009507513-1206USA03493

PATIENT
  Sex: Female

DRUGS (5)
  1. FOSAMAX [Suspect]
     Indication: OSTEOPOROSIS PROPHYLAXIS
     Dosage: UNK
     Route: 048
     Dates: start: 2006
  2. BONIVA [Suspect]
     Indication: OSTEOPOROSIS PROPHYLAXIS
     Dosage: UNK
     Route: 048
     Dates: start: 200610, end: 201002
  3. BONIVA [Suspect]
     Dosage: UNK
     Route: 048
     Dates: end: 20100623
  4. SYNTHROID [Concomitant]
     Indication: HYPOTHYROIDISM
     Dosage: UNK
     Route: 048
     Dates: start: 1992
  5. NEXIUM [Concomitant]
     Indication: GASTROOESOPHAGEAL REFLUX DISEASE
     Dosage: UNK
     Route: 048
     Dates: start: 2005, end: 2010

REACTIONS (16)
  - Femur fracture [Recovered/Resolved with Sequelae]
  - Fall [Recovered/Resolved with Sequelae]
  - Femur fracture [Recovered/Resolved with Sequelae]
  - Fall [Unknown]
  - Skin neoplasm excision [Unknown]
  - Basal cell carcinoma [Unknown]
  - Blood cholesterol increased [Not Recovered/Not Resolved]
  - Intestinal dilatation [Recovered/Resolved]
  - Acquired oesophageal web [Unknown]
  - Foreign body [Unknown]
  - Oesophageal rupture [Not Recovered/Not Resolved]
  - Gastritis [Unknown]
  - Dysphagia [Unknown]
  - Hiatus hernia [Unknown]
  - Oesophagitis [Unknown]
  - Hyperlipidaemia [Unknown]
